FAERS Safety Report 8249221-0 (Version None)
Quarter: 2012Q1

REPORT INFORMATION
  Report Type: 
  Country: None (occurrence: None)
  Receive Date: 20120315
  Receipt Date: 20120302
  Transmission Date: 20120608
  Serious: Yes (Other)
  Sender: FDA-Public Use
  Company Number: 24705

PATIENT
  Sex: Male
  Weight: 75.4 kg

DRUGS (14)
  1. PLAVIX [Concomitant]
  2. ASPIRIN [Concomitant]
  3. GLUCOSAMINE [Concomitant]
  4. ZETIA [Concomitant]
  5. FLOMAX [Concomitant]
  6. SYMBICORT [Concomitant]
  7. FISH OIL [Concomitant]
  8. GLASSIA [Suspect]
     Indication: ALPHA-1 ANTI-TRYPSIN DEFICIENCY
  9. GLASSIA [Suspect]
     Indication: ALPHA-1 ANTI-TRYPSIN DEFICIENCY
     Dosage: 4500MG/ONCE A WEEK/IV
     Route: 042
     Dates: start: 20111014, end: 20120105
  10. GLASSIA [Suspect]
     Indication: ALPHA-1 ANTI-TRYPSIN DEFICIENCY
  11. GLASSIA [Suspect]
     Indication: ALPHA-1 ANTI-TRYPSIN DEFICIENCY
  12. SIMVASTATIN [Concomitant]
  13. SPIRIVA [Concomitant]
  14. MULTI-VITAMIN [Concomitant]

REACTIONS (1)
  - LUNG NEOPLASM MALIGNANT [None]
